FAERS Safety Report 6428276-X (Version None)
Quarter: 2009Q4

REPORT INFORMATION
  Report Type: 
  Country: None (occurrence: None)
  Receive Date: 20091030
  Receipt Date: 20091019
  Transmission Date: 20100525
  Serious: Yes (Life-Threatening)
  Sender: FDA-Public Use
  Company Number: TCI2009A04184

PATIENT
  Age: 90 Year
  Sex: Female

DRUGS (7)
  1. LANSOPRAZOLE [Suspect]
     Indication: REFLUX OESOPHAGITIS
     Dosage: 15 MG (15 MG, 1 IN 1 D) PER ORAL
     Route: 048
     Dates: end: 20090716
  2. LANSOPRAZOLE [Suspect]
     Indication: REFLUX OESOPHAGITIS
     Dosage: 15 MG (15 MG, 1 IN 1 D) PER ORAL
     Route: 048
     Dates: start: 20090802, end: 20090920
  3. AMLODIPINE BESYLATE [Suspect]
     Dosage: PER ORAL
     Route: 048
     Dates: end: 20090716
  4. AMLODIPINE BESYLATE [Suspect]
     Dosage: PER ORAL
     Route: 048
     Dates: start: 20090802, end: 20090920
  5. NEUROVITAN (PYRIDOXINE HYDROCHLORIDE, CYANOCOBALAMIN, RIBOFLAVIN, OCTO [Concomitant]
  6. LEVOTHYROXINE SODIUM [Concomitant]
  7. CORTRIL [Concomitant]

REACTIONS (9)
  - ACTIVATED PARTIAL THROMBOPLASTIN TIME PROLONGED [None]
  - CATHETER SITE HAEMORRHAGE [None]
  - CEREBRAL INFARCTION [None]
  - DEMENTIA [None]
  - HAEMODIALYSIS [None]
  - HAEMORRHAGE SUBCUTANEOUS [None]
  - HYPERTENSION [None]
  - NEPHROGENIC ANAEMIA [None]
  - RENAL FAILURE CHRONIC [None]
